FAERS Safety Report 23154954 (Version 1)
Quarter: 2023Q4

REPORT INFORMATION
  Report Type: Report from Study
  Country: US (occurrence: US)
  Receive Date: 20231107
  Receipt Date: 20231107
  Transmission Date: 20240109
  Serious: Yes (Life-Threatening, Hospitalization, Other)
  Sender: FDA-Public Use
  Company Number: US-KARYOPHARM-2023KPT002155

PATIENT
  Age: 10 Year
  Sex: Male
  Weight: 56.9 kg

DRUGS (1)
  1. SELINEXOR [Suspect]
     Active Substance: SELINEXOR
     Indication: Brain stem glioma
     Dosage: 55 MG/M2
     Dates: start: 20230519

REACTIONS (3)
  - Hypokalaemia [Not Recovered/Not Resolved]
  - Depressed level of consciousness [Recovered/Resolved]
  - Weight decreased [Not Recovered/Not Resolved]

NARRATIVE: CASE EVENT DATE: 20231031
